FAERS Safety Report 25442920 (Version 1)
Quarter: 2025Q2

REPORT INFORMATION
  Report Type: Other
  Country: FR (occurrence: FR)
  Receive Date: 20250617
  Receipt Date: 20250617
  Transmission Date: 20250717
  Serious: Yes (Hospitalization)
  Sender: ZYDUS PHARM
  Company Number: None

PATIENT

DRUGS (7)
  1. BACLOFEN [Suspect]
     Active Substance: BACLOFEN
     Indication: Wrong product administered
     Route: 048
     Dates: start: 20250428, end: 20250428
  2. AMITRIPTYLINE HYDROCHLORIDE [Suspect]
     Active Substance: AMITRIPTYLINE HYDROCHLORIDE
     Indication: Wrong product administered
     Route: 048
     Dates: start: 20250428, end: 20250428
  3. TRIHEXYPHENIDYL HYDROCHLORIDE [Suspect]
     Active Substance: TRIHEXYPHENIDYL HYDROCHLORIDE
     Indication: Wrong product administered
     Route: 048
     Dates: start: 20250428, end: 20250428
  4. TEGRETOL [Suspect]
     Active Substance: CARBAMAZEPINE
     Indication: Wrong product administered
     Route: 048
     Dates: start: 20250428, end: 20250428
  5. CYAMEMAZINE [Suspect]
     Active Substance: CYAMEMAZINE
     Indication: Wrong product administered
     Route: 048
     Dates: start: 20250428, end: 20250428
  6. PHLOROGLUCINOL\1,3,5-TRIMETHOXYBENZENE [Concomitant]
     Active Substance: PHLOROGLUCINOL\1,3,5-TRIMETHOXYBENZENE
     Indication: Wrong product administered
     Route: 048
     Dates: start: 20250428, end: 20250428
  7. DOLIPRANE [Concomitant]
     Active Substance: ACETAMINOPHEN
     Indication: Wrong product administered
     Route: 048
     Dates: start: 20250428, end: 20250428

REACTIONS (3)
  - Seizure [Recovered/Resolved]
  - Coma [Recovered/Resolved]
  - Wrong patient received product [Recovered/Resolved]

NARRATIVE: CASE EVENT DATE: 20250428
